FAERS Safety Report 5896159-X (Version None)
Quarter: 2008Q3

REPORT INFORMATION
  Report Type: 
  Country: None (occurrence: None)
  Receive Date: 20080924
  Receipt Date: 20080131
  Transmission Date: 20090109
  Serious: Yes (Other)
  Sender: FDA-Public Use
  Company Number: US-ASTRAZENECA-2007UW02012

PATIENT
  Age: 355 Month
  Sex: Female
  Weight: 99.8 kg

DRUGS (3)
  1. SEROQUEL [Suspect]
     Indication: BIPOLAR DISORDER
     Dosage: 200 MG - 600 MG
     Route: 048
     Dates: start: 20020404, end: 20030428
  2. SEROQUEL [Suspect]
     Route: 048
     Dates: start: 20030428
  3. RISPERDAL [Concomitant]
     Route: 048
     Dates: start: 20010101, end: 20030101

REACTIONS (12)
  - BREAST MASS [None]
  - CERVICITIS [None]
  - CONVULSION [None]
  - DIABETES MELLITUS [None]
  - FATIGUE [None]
  - FUNGAL INFECTION [None]
  - GASTROENTERITIS [None]
  - HYPERTENSION [None]
  - KIDNEY INFECTION [None]
  - PARAESTHESIA [None]
  - RASH [None]
  - SUICIDAL BEHAVIOUR [None]
